FAERS Safety Report 5698417-0 (Version None)
Quarter: 2008Q2

REPORT INFORMATION
  Report Type: 
  Country: None (occurrence: None)
  Receive Date: 20080403
  Receipt Date: 20080324
  Transmission Date: 20081010
  Serious: Yes (Other)
  Sender: FDA-Public Use
  Company Number: 2008JP001336

PATIENT
  Age: 82 Year
  Sex: Male

DRUGS (6)
  1. VESICARE [Suspect]
     Indication: HYPERTONIC BLADDER
     Dosage: 5 MG, UID/QD, ORAL
     Route: 048
     Dates: start: 20080229, end: 20080304
  2. WARFARIN SODIUM [Suspect]
     Dates: end: 20080201
  3. DEPAKENE [Concomitant]
  4. NITRODERM [Concomitant]
  5. LANSOPRAZOLE [Concomitant]
  6. DIGOXIN [Concomitant]

REACTIONS (1)
  - CONVULSION [None]
